FAERS Safety Report 5319780-6 (Version None)
Quarter: 2007Q1

REPORT INFORMATION
  Report Type: 
  Country: None (occurrence: None)
  Receive Date: 20070201
  Receipt Date: 20060731
  Transmission Date: 20070707
  Serious: Yes (Other)
  Sender: FDA-Public Use
  Company Number: 2006094306

PATIENT
  Age: 55 Year
  Sex: Female

DRUGS (9)
  1. AROMASIN [Suspect]
     Indication: BREAST CANCER
     Dosage: 25 MG (25 MG, EVERY DAY)
     Dates: start: 20060101, end: 20060101
  2. TAMOXIFEN CITRATE [Suspect]
  3. IBANDRONATE SODIUM (IBANDRONATE SODIUM) [Suspect]
     Indication: OSTEOPOROSIS
     Dates: start: 20060101, end: 20060101
  4. TENORMIN [Concomitant]
  5. NITROGLYCERIN [Concomitant]
  6. PREVACID [Concomitant]
  7. ATENOLOL [Concomitant]
  8. PRAVASTATIN [Concomitant]
  9. TRICOR [Concomitant]

REACTIONS (9)
  - BLOOD TRIGLYCERIDES INCREASED [None]
  - DYSPNOEA [None]
  - EXERCISE TOLERANCE DECREASED [None]
  - FATIGUE [None]
  - HEART RATE DECREASED [None]
  - INSOMNIA [None]
  - MIGRAINE [None]
  - OSTEOPOROSIS [None]
  - WEIGHT INCREASED [None]
